FAERS Safety Report 8775703 (Version 6)
Quarter: 2013Q2

REPORT INFORMATION
  Report Type: Spontaneous
  Country: US (occurrence: US)
  Receive Date: 20120910
  Receipt Date: 20130523
  Transmission Date: 20140414
  Serious: Yes (Hospitalization, Other)
  Sender: FDA-Public Use
  Company Number: US-009507513-1110USA03429

PATIENT
  Sex: Female
  Weight: 51.93 kg

DRUGS (6)
  1. FOSAMAX [Suspect]
     Indication: OSTEOPOROSIS
     Dosage: 35 MG, QW
     Route: 048
     Dates: start: 1999, end: 2008
  2. FOSAMAX [Suspect]
     Indication: OSTEOPENIA
     Dosage: 70 MG, QW
     Route: 048
     Dates: start: 1999, end: 2008
  3. FOSAMAX PLUS D [Suspect]
     Indication: OSTEOPOROSIS
     Dosage: UNK
     Route: 048
     Dates: start: 200504, end: 200802
  4. FOSAMAX PLUS D [Suspect]
     Indication: OSTEOPENIA
  5. FOSAMAX [Suspect]
     Indication: OSTEOPOROSIS
     Dosage: 35 MG, UNK
     Route: 048
     Dates: start: 200809, end: 2010
  6. FOSAMAX [Suspect]
     Indication: OSTEOPENIA

REACTIONS (28)
  - Femur fracture [Unknown]
  - Breast cancer [Unknown]
  - Heart rate irregular [Unknown]
  - Hysterectomy [Unknown]
  - Mastectomy [Unknown]
  - Fall [Unknown]
  - Atrial fibrillation [Not Recovered/Not Resolved]
  - Cardioversion [Unknown]
  - Open reduction of fracture [Unknown]
  - Open reduction of fracture [Unknown]
  - Femur fracture [Unknown]
  - Femur fracture [Unknown]
  - Hypercholesterolaemia [Unknown]
  - Heart rate irregular [Unknown]
  - Atrial flutter [Unknown]
  - Atrioventricular block [Unknown]
  - Tachycardia [Unknown]
  - Fall [Unknown]
  - Palpitations [Unknown]
  - Insomnia [Unknown]
  - Cataract [Unknown]
  - Unevaluable event [Unknown]
  - Senile osteoporosis [Unknown]
  - Gout [Recovering/Resolving]
  - Essential hypertension [Unknown]
  - Carotid artery stenosis [Unknown]
  - Osteoarthritis [Unknown]
  - Foot fracture [Unknown]
